FAERS Safety Report 7483642-9 (Version None)
Quarter: 2011Q2

REPORT INFORMATION
  Report Type: 
  Country: None (occurrence: None)
  Receive Date: 20110517
  Receipt Date: 20110512
  Transmission Date: 20111010
  Serious: Yes (Other)
  Sender: FDA-Public Use
  Company Number: US-PFIZER INC-2011102726

PATIENT
  Age: 16 Year
  Sex: Female

DRUGS (1)
  1. CYTOTEC [Suspect]
     Dosage: UNK
     Route: 048

REACTIONS (2)
  - ABORTION [None]
  - HAEMORRHAGE [None]
